FAERS Safety Report 6914757-9 (Version None)
Quarter: 2010Q3

REPORT INFORMATION
  Report Type: 
  Country: None (occurrence: None)
  Receive Date: 20100809
  Receipt Date: 20100730
  Transmission Date: 20110219
  Serious: Yes (Death, Hospitalization)
  Sender: FDA-Public Use
  Company Number: CA-ABBOTT-10P-028-0639950-00

PATIENT
  Sex: Male
  Weight: 74.91 kg

DRUGS (9)
  1. LUPRON DEPOT [Suspect]
     Indication: PROSTATE CANCER
     Dates: start: 20091009, end: 20100108
  2. FLOMAX CR 0.4 MG COMP LA [Concomitant]
     Indication: PRODUCT USED FOR UNKNOWN INDICATION
  3. DIOVAN HCT [Concomitant]
     Indication: PRODUCT USED FOR UNKNOWN INDICATION
     Dosage: 80/12.5 MG, DAILY
  4. APO-NIZATIDINE [Concomitant]
     Indication: PRODUCT USED FOR UNKNOWN INDICATION
  5. SANDOZ-DILTIAZEM T [Concomitant]
     Indication: PRODUCT USED FOR UNKNOWN INDICATION
  6. OXAZEPAM [Concomitant]
     Indication: PRODUCT USED FOR UNKNOWN INDICATION
     Dosage: 1/2 TAB, AT BEDTIME
  7. CALTRATE PLUS [Concomitant]
     Indication: PRODUCT USED FOR UNKNOWN INDICATION
  8. ASAPHEN EC [Concomitant]
     Indication: PRODUCT USED FOR UNKNOWN INDICATION
  9. SYNTHROID [Concomitant]
     Indication: PRODUCT USED FOR UNKNOWN INDICATION

REACTIONS (3)
  - GENERAL PHYSICAL HEALTH DETERIORATION [None]
  - INFECTION [None]
  - MYOCARDIAL INFARCTION [None]
